FAERS Safety Report 5032274-0 (Version None)
Quarter: 2006Q2

REPORT INFORMATION
  Report Type: 
  Country: None (occurrence: None)
  Receive Date: 20060619
  Receipt Date: 20060610
  Transmission Date: 20061013
  Serious: Yes (Other)
  Sender: FDA-Public Use
  Company Number: 2006-06-0838

PATIENT
  Age: 58 Year
  Sex: Female

DRUGS (5)
  1. PEG-INTRON [Suspect]
     Indication: HEPATITIS C
     Dosage: SUBCUTANEOUS
     Route: 058
     Dates: start: 20050902, end: 20060607
  2. REBETOL [Suspect]
     Indication: HEPATITIS C
     Dosage: ORAL
     Route: 048
     Dates: start: 20050902, end: 20060607
  3. MIACALCIN [Concomitant]
  4. VAGIFEM [Concomitant]
  5. VASOTEC [Concomitant]

REACTIONS (8)
  - ALOPECIA [None]
  - ATELECTASIS [None]
  - CONDITION AGGRAVATED [None]
  - PNEUMONIA [None]
  - PSORIASIS [None]
  - URINARY TRACT INFECTION [None]
  - WEIGHT DECREASED [None]
  - WHITE BLOOD CELL COUNT DECREASED [None]
